FAERS Safety Report 8257225-7 (Version None)
Quarter: 2012Q2

REPORT INFORMATION
  Report Type: 
  Country: None (occurrence: None)
  Receive Date: 20120403
  Receipt Date: 20120329
  Transmission Date: 20120825
  Serious: No
  Sender: FDA-Public Use
  Company Number: US-PFIZER INC-2012081207

PATIENT
  Sex: Male
  Weight: 7.71 kg

DRUGS (2)
  1. PEDIATRIC ADVIL [Suspect]
     Indication: PYREXIA
     Dosage: 1.25 MG, (TWO OR THREE TIMES A DAY)
     Route: 048
     Dates: start: 20120328
  2. AMOXICILLIN [Concomitant]
     Indication: EAR INFECTION
     Dosage: 5 MG, 2X/DAY

REACTIONS (1)
  - RASH GENERALISED [None]
